FAERS Safety Report 25605970 (Version 2)
Quarter: 2025Q3

REPORT INFORMATION
  Report Type: Report from Study
  Country: JP (occurrence: JP)
  Receive Date: 20250725
  Receipt Date: 20250806
  Transmission Date: 20251021
  Serious: Yes (Hospitalization, Other)
  Sender: ASTELLAS
  Company Number: JP-ASTELLAS-2025-AER-035022

PATIENT
  Age: 71 Year
  Sex: Male
  Weight: 66 kg

DRUGS (43)
  1. VYLOY [Suspect]
     Active Substance: ZOLBETUXIMAB-CLZB
     Indication: Gastric cancer recurrent
     Route: 042
     Dates: start: 20250206, end: 20250206
  2. VYLOY [Suspect]
     Active Substance: ZOLBETUXIMAB-CLZB
     Route: 042
     Dates: start: 20250227, end: 20250227
  3. VYLOY [Suspect]
     Active Substance: ZOLBETUXIMAB-CLZB
     Route: 042
     Dates: start: 20250528, end: 20250528
  4. VYLOY [Suspect]
     Active Substance: ZOLBETUXIMAB-CLZB
     Route: 042
     Dates: start: 20250618, end: 20250618
  5. VYLOY [Suspect]
     Active Substance: ZOLBETUXIMAB-CLZB
     Route: 042
  6. VONOPRAZAN FUMARATE [Concomitant]
     Active Substance: VONOPRAZAN FUMARATE
     Indication: Product used for unknown indication
     Route: 048
     Dates: start: 2023
  7. Lantus XR injection SoloStar [Concomitant]
     Indication: Product used for unknown indication
     Route: 048
     Dates: start: 20250204, end: 20250326
  8. Insulin Lispro BS SoloStar injection [Concomitant]
     Indication: Product used for unknown indication
     Route: 048
     Dates: start: 20250204, end: 20250326
  9. OXALIPLATIN [Concomitant]
     Active Substance: OXALIPLATIN
     Indication: Product used for unknown indication
     Route: 048
     Dates: start: 20250206, end: 20250227
  10. OXALIPLATIN [Concomitant]
     Active Substance: OXALIPLATIN
     Route: 048
     Dates: start: 20250528
  11. PALONOSETRON [Concomitant]
     Active Substance: PALONOSETRON
     Indication: Prophylaxis
     Route: 065
  12. FOSNETUPITANT [Concomitant]
     Active Substance: FOSNETUPITANT
     Indication: Prophylaxis
     Route: 065
  13. DEXAMETHASONE [Concomitant]
     Active Substance: DEXAMETHASONE
     Indication: Prophylaxis
     Route: 065
  14. CHLORPHENIRAMINE [Concomitant]
     Active Substance: CHLORPHENIRAMINE
     Indication: Prophylaxis
     Route: 065
  15. THYRADIN-S TABLETS 25ug [Concomitant]
     Indication: Product used for unknown indication
     Route: 048
     Dates: start: 20250211
  16. MOVICOL Combination internal medication HD [Concomitant]
     Indication: Product used for unknown indication
     Route: 048
     Dates: start: 20250227, end: 20250405
  17. TAZOPIPE COMBINATION FOR I.V.INJECTION [Concomitant]
     Indication: Staphylococcal bacteraemia
     Dosage: ROUTE OF ADMIN.: INJECTION
     Route: 048
     Dates: start: 20250318, end: 20250326
  18. TAZOPIPE COMBINATION FOR I.V.INJECTION [Concomitant]
     Indication: Pneumonia
  19. Humulin R Injection 100 Units [Concomitant]
     Indication: Product used for unknown indication
     Route: 048
     Dates: start: 20250318, end: 20250324
  20. SOLDEM 3A Infusion 500mL [Concomitant]
     Indication: Decreased appetite
     Dosage: ROUTE OF ADMIN.: INJECTION
     Route: 048
     Dates: start: 20250501, end: 20250512
  21. SOLDEM 3A Infusion 500mL [Concomitant]
     Indication: Diarrhoea
     Dosage: ROUTE OF ADMIN.: INJECTION
     Route: 048
     Dates: start: 20250624
  22. SOLDEM 3A Infusion 500mL [Concomitant]
     Dosage: ROUTE OF ADMIN.: INJECTION
     Route: 048
     Dates: start: 20250319, end: 20250324
  23. CYANOCOBALAMIN\PYRIDOXINE HYDROCHLORIDE\THIAMINE [Concomitant]
     Active Substance: CYANOCOBALAMIN\PYRIDOXINE HYDROCHLORIDE\THIAMINE
     Indication: Decreased appetite
     Route: 048
     Dates: start: 20250501, end: 20250507
  24. CYANOCOBALAMIN\PYRIDOXINE HYDROCHLORIDE\THIAMINE [Concomitant]
     Active Substance: CYANOCOBALAMIN\PYRIDOXINE HYDROCHLORIDE\THIAMINE
     Indication: Diarrhoea
     Route: 048
     Dates: start: 20250319, end: 20250324
  25. Trazenta Tablets 5mg [Concomitant]
     Indication: Product used for unknown indication
     Route: 048
     Dates: start: 20250322
  26. SULBACILLIN for Injection [Concomitant]
     Indication: Staphylococcal bacteraemia
     Dosage: ROUTE OF ADMIN.: INJECTION
     Route: 048
     Dates: start: 20250327, end: 20250404
  27. SULBACILLIN for Injection [Concomitant]
     Indication: Pneumonia
  28. SOLULACT Infusion 500mL [Concomitant]
     Indication: Decreased appetite
     Dosage: ROUTE OF ADMIN.: INJECTION
     Route: 048
     Dates: start: 20250624
  29. SOLULACT Infusion 500mL [Concomitant]
     Indication: Diarrhoea
     Route: 048
     Dates: start: 20250501, end: 20250509
  30. Omeprazole for Injection 20mg [Concomitant]
     Indication: Product used for unknown indication
     Route: 048
     Dates: start: 20250501, end: 20250508
  31. FLUOROURACIL [Concomitant]
     Active Substance: FLUOROURACIL
     Indication: Product used for unknown indication
     Route: 048
     Dates: start: 20250528
  32. LEVOLEUCOVORIN CALCIUM [Concomitant]
     Active Substance: LEVOLEUCOVORIN CALCIUM
     Indication: Product used for unknown indication
     Route: 048
     Dates: start: 20250528
  33. LAC-B granular powder N [Concomitant]
     Indication: Product used for unknown indication
     Route: 048
     Dates: start: 20230126, end: 20250319
  34. LAC-B granular powder N [Concomitant]
     Indication: Diarrhoea
     Route: 048
     Dates: start: 20250618
  35. GATIFLO OPHTHALMIC SOLUTION 0.3? [Concomitant]
     Indication: Product used for unknown indication
     Dosage: ROUTE OF ADMIN.: EXTERNAL USE
     Route: 048
     Dates: start: 2025
  36. Pregabalin capsules 75mg [Concomitant]
     Indication: Product used for unknown indication
     Route: 048
  37. Pirenoxine ophthalmic suspension 0.005% [Concomitant]
     Indication: Product used for unknown indication
     Dosage: ROUTE OF ADMIN.: EXTERNAL USE
     Route: 048
  38. Miopin ophthalmic solution 5mL [Concomitant]
     Indication: Product used for unknown indication
     Dosage: ROUTE OF ADMIN.: EXTERNAL USE
     Route: 048
  39. METOCLOPRAMIDE [Concomitant]
     Active Substance: METOCLOPRAMIDE
     Indication: Product used for unknown indication
     Route: 065
  40. LOPERAMIDE [Concomitant]
     Active Substance: LOPERAMIDE
     Indication: Diarrhoea
     Route: 065
  41. KCL Injection 20mEq kit [Concomitant]
     Indication: Hypokalaemia
     Route: 065
     Dates: start: 20250624
  42. ALBUMINAR 25% I.V.Injection 12.5g/50mL [Concomitant]
     Indication: Oedema
     Route: 065
     Dates: start: 20250624
  43. Furosemide Injection 20mg [Concomitant]
     Indication: Oedema
     Route: 065
     Dates: start: 20250624

REACTIONS (12)
  - Hypokalaemia [Recovered/Resolved]
  - Diarrhoea [Recovering/Resolving]
  - Diarrhoea [Recovered/Resolved]
  - Oedema [Recovered/Resolved]
  - Pyrexia [Recovered/Resolved]
  - Malaise [Recovered/Resolved]
  - Hypothyroidism [Unknown]
  - Ileus [Recovered/Resolved]
  - Haematuria [Unknown]
  - Proteinuria [Unknown]
  - Decreased appetite [Recovered/Resolved]
  - Blood albumin decreased [Not Recovered/Not Resolved]

NARRATIVE: CASE EVENT DATE: 20250421
